FAERS Safety Report 11331953 (Version 1)
Quarter: 2015Q3

REPORT INFORMATION
  Report Type: Spontaneous
  Country: US (occurrence: US)
  Receive Date: 20150803
  Receipt Date: 20150803
  Transmission Date: 20151125
  Serious: Yes (Disabling)
  Sender: FDA-Public Use
  Company Number: US-ELI_LILLY_AND_COMPANY-US200804005701

PATIENT
  Age: 49 Year
  Sex: Female

DRUGS (7)
  1. ZYPREXA [Suspect]
     Active Substance: OLANZAPINE
     Indication: FEELING OF RELAXATION
     Dosage: 5 MG, UNK
     Dates: start: 20041014, end: 20041014
  2. LAMICTAL [Concomitant]
     Active Substance: LAMOTRIGINE
     Dosage: 0.25 MG, DAILY (1/D)
  3. EFFEXOR [Concomitant]
     Active Substance: VENLAFAXINE HYDROCHLORIDE
     Dates: end: 20041008
  4. LEXAPRO [Concomitant]
     Active Substance: ESCITALOPRAM OXALATE
     Dosage: 10 MG, UNK
     Dates: start: 20041012
  5. SEROQUEL [Concomitant]
     Active Substance: QUETIAPINE FUMARATE
  6. LORAZEPAM. [Concomitant]
     Active Substance: LORAZEPAM
  7. XANAX [Concomitant]
     Active Substance: ALPRAZOLAM
     Indication: AGITATION

REACTIONS (14)
  - Gait disturbance [Unknown]
  - Nervousness [Not Recovered/Not Resolved]
  - Apathy [Recovering/Resolving]
  - Drug interaction [Recovering/Resolving]
  - Depression [Unknown]
  - Muscle spasms [Recovering/Resolving]
  - Confusional state [Recovering/Resolving]
  - Tremor [Not Recovered/Not Resolved]
  - Panic attack [Unknown]
  - Mood swings [Unknown]
  - Memory impairment [Recovering/Resolving]
  - Hypersensitivity [Recovering/Resolving]
  - Anxiety [Recovering/Resolving]
  - Feeling abnormal [Recovering/Resolving]

NARRATIVE: CASE EVENT DATE: 200410
